FAERS Safety Report 19373300 (Version 8)
Quarter: 2021Q4

REPORT INFORMATION
  Report Type: Report from Study
  Country: US (occurrence: US)
  Receive Date: 20210603
  Receipt Date: 20211109
  Transmission Date: 20220303
  Serious: No
  Sender: FDA-Public Use
  Company Number: NVSC2021US117660

PATIENT
  Sex: Female

DRUGS (1)
  1. KESIMPTA [Suspect]
     Active Substance: OFATUMUMAB
     Indication: Relapsing-remitting multiple sclerosis
     Dosage: 20 MG, QMO
     Route: 058
     Dates: start: 20210225

REACTIONS (10)
  - Pollakiuria [Recovering/Resolving]
  - Fatigue [Recovering/Resolving]
  - Balance disorder [Recovering/Resolving]
  - Vision blurred [Recovering/Resolving]
  - Hot flush [Unknown]
  - Limb discomfort [Recovering/Resolving]
  - Fall [Recovering/Resolving]
  - Injury [Recovering/Resolving]
  - Heat exhaustion [Recovering/Resolving]
  - Headache [Recovered/Resolved]
